FAERS Safety Report 13672782 (Version 1)
Quarter: 2017Q2

REPORT INFORMATION
  Report Type: Spontaneous
  Country: SE (occurrence: SE)
  Receive Date: 20170621
  Receipt Date: 20170621
  Transmission Date: 20170830
  Serious: Yes (Other)
  Sender: FDA-Public Use
  Company Number: SE-BAYER-2017-113078

PATIENT
  Age: 45 Year
  Sex: Female

DRUGS (1)
  1. MIRENA [Suspect]
     Active Substance: LEVONORGESTREL
     Indication: MENORRHAGIA
     Dosage: 20 MCG/24HR, CONT
     Route: 015
     Dates: start: 20160212, end: 20170224

REACTIONS (12)
  - Dry eye [Recovered/Resolved]
  - Depressed mood [Recovered/Resolved]
  - Vision blurred [Recovered/Resolved]
  - Migraine with aura [Recovered/Resolved]
  - Anxiety [Recovered/Resolved]
  - Photophobia [Recovered/Resolved]
  - Constipation [Recovered/Resolved]
  - Visual impairment [Recovered/Resolved]
  - Ovarian cyst [Recovered/Resolved]
  - Ear discomfort [Recovered/Resolved]
  - Breast pain [Recovered/Resolved]
  - Dizziness postural [Recovered/Resolved]

NARRATIVE: CASE EVENT DATE: 201604
